FAERS Safety Report 9405313 (Version 2)
Quarter: 2013Q3

REPORT INFORMATION
  Report Type: Spontaneous
  Country: US (occurrence: US)
  Receive Date: 20130717
  Receipt Date: 20130730
  Transmission Date: 20140515
  Serious: Yes (Hospitalization, Other)
  Sender: FDA-Public Use
  Company Number: US-TEVA-419488USA

PATIENT
  Sex: Female

DRUGS (3)
  1. PROAIR HFA [Suspect]
     Indication: ASTHMA
     Route: 055
  2. ADVAIR [Suspect]
  3. DURELL [Suspect]

REACTIONS (4)
  - Pneumonia [Unknown]
  - Cardiac operation [Unknown]
  - Transfusion related complication [Unknown]
  - Fibromyalgia [Unknown]
